FAERS Safety Report 10572567 (Version 5)
Quarter: 2014Q4

REPORT INFORMATION
  Report Type: Report from Study
  Country: US (occurrence: US)
  Receive Date: 20141110
  Receipt Date: 20141211
  Transmission Date: 20150529
  Serious: Yes (Other)
  Sender: FDA-Public Use
  Company Number: US-AMGEN-USASP2014056995

PATIENT
  Age: 70 Year
  Sex: Female
  Weight: 65.76 kg

DRUGS (3)
  1. ENBREL [Suspect]
     Active Substance: ETANERCEPT
     Indication: RHEUMATOID ARTHRITIS
     Dosage: 50 MG, QWK
     Route: 058
     Dates: start: 200607
  2. ENBREL [Suspect]
     Active Substance: ETANERCEPT
     Dosage: UNK
     Route: 058
  3. NAPROXEN. [Concomitant]
     Active Substance: NAPROXEN
     Indication: RHEUMATOID ARTHRITIS
     Dosage: 5 MG, BID
     Route: 048
     Dates: start: 1996

REACTIONS (8)
  - Lung infiltration [Unknown]
  - Bronchiectasis [Unknown]
  - Arteriosclerosis coronary artery [Unknown]
  - Intervertebral disc protrusion [Unknown]
  - Lymphadenopathy [Unknown]
  - Pneumonia [Unknown]
  - Computerised tomogram thorax abnormal [Not Recovered/Not Resolved]
  - Injection site pain [Unknown]

NARRATIVE: CASE EVENT DATE: 2013
